FAERS Safety Report 5331064-9 (Version None)
Quarter: 2007Q2

REPORT INFORMATION
  Report Type: 
  Country: None (occurrence: None)
  Receive Date: 20070522
  Receipt Date: 20070511
  Transmission Date: 20071010
  Serious: Yes (Hospitalization, Other)
  Sender: FDA-Public Use
  Company Number: B0471454A

PATIENT
  Age: 91 Year
  Sex: Female
  Weight: 59 kg

DRUGS (5)
  1. ACYCLOVIR [Suspect]
     Dosage: 200MG FIVE TIMES PER DAY
     Route: 048
     Dates: start: 20070330, end: 20070331
  2. AMITRIPTYLINE HCL [Suspect]
     Indication: POST HERPETIC NEURALGIA
     Dosage: 25MG PER DAY
     Route: 048
     Dates: start: 20070320, end: 20070331
  3. DIAZEPAM [Concomitant]
     Indication: PANIC ATTACK
     Dosage: 2MG AS REQUIRED
     Route: 048
  4. DOXAZOSIN MESYLATE [Concomitant]
     Indication: HYPERTENSION
     Dosage: 6MG PER DAY
     Route: 048
  5. FUROSEMIDE [Concomitant]
     Dosage: 80MG PER DAY
     Route: 048

REACTIONS (4)
  - DYSPHONIA [None]
  - DYSPNOEA [None]
  - SWELLING FACE [None]
  - SWOLLEN TONGUE [None]
